FAERS Safety Report 9689748 (Version 2)
Quarter: 2014Q1

REPORT INFORMATION
  Report Type: Report from Study
  Country: CA (occurrence: CA)
  Receive Date: 20131115
  Receipt Date: 20140102
  Transmission Date: 20141002
  Serious: Yes (Death)
  Sender: FDA-Public Use
  Company Number: CA-JNJFOC-20131105818

PATIENT
  Sex: Male

DRUGS (2)
  1. REMICADE [Suspect]
     Indication: COLITIS ULCERATIVE
     Dosage: PATIENT HAD ONLY ONE DOSE OF INFLIXIMAB
     Route: 042
     Dates: start: 20131023, end: 20131023
  2. REMICADE [Suspect]
     Indication: CROHN^S DISEASE
     Dosage: PATIENT HAD ONLY ONE DOSE OF INFLIXIMAB
     Route: 042
     Dates: start: 20131023, end: 20131023

REACTIONS (2)
  - Neoplasm malignant [Fatal]
  - Drug ineffective [Unknown]
